FAERS Safety Report 24047711 (Version 2)
Quarter: 2024Q3

REPORT INFORMATION
  Report Type: Spontaneous
  Country: SK (occurrence: SK)
  Receive Date: 20240703
  Receipt Date: 20240805
  Transmission Date: 20241016
  Serious: Yes (Other)
  Sender: ELI LILLY AND CO
  Company Number: SK-ELI_LILLY_AND_COMPANY-SK202406018453

PATIENT
  Age: 64 Year
  Sex: Male
  Weight: 77 kg

DRUGS (2)
  1. OLUMIANT [Suspect]
     Active Substance: BARICITINIB
     Indication: Rheumatoid arthritis
     Dosage: 4 MG, DAILY
     Route: 048
     Dates: start: 202207, end: 20240430
  2. SULFASALAZINE DELAYED-RELEASE [Concomitant]
     Active Substance: SULFASALAZINE
     Indication: Product used for unknown indication
     Dosage: 2 G, UNKNOWN
     Route: 065

REACTIONS (2)
  - Adenocarcinoma of colon [Not Recovered/Not Resolved]
  - C-reactive protein increased [Unknown]
